FAERS Safety Report 8378345-2 (Version None)
Quarter: 2012Q2

REPORT INFORMATION
  Report Type: 
  Country: None (occurrence: None)
  Receive Date: 20120522
  Receipt Date: 20120517
  Transmission Date: 20120825
  Serious: Yes (Disabling)
  Sender: FDA-Public Use
  Company Number: US-CELGENEUS-163-21880-12013146

PATIENT
  Sex: Female
  Weight: 48.124 kg

DRUGS (1)
  1. REVLIMID [Suspect]
     Indication: MULTIPLE MYELOMA
     Dosage: 10 MILLIGRAM
     Route: 048
     Dates: start: 20111024, end: 20120118

REACTIONS (2)
  - CARPAL TUNNEL SYNDROME [None]
  - NEUROPATHY PERIPHERAL [None]
